FAERS Safety Report 9809374 (Version 2)
Quarter: 2014Q1

REPORT INFORMATION
  Report Type: Spontaneous
  Country: US (occurrence: US)
  Receive Date: 20140110
  Receipt Date: 20140110
  Transmission Date: 20141002
  Serious: No
  Sender: FDA-Public Use
  Company Number: US-B.I. PHARMACEUTICALS,INC./RIDGEFIELD-2013-BI-22914BP

PATIENT
  Sex: Male
  Weight: 84.37 kg

DRUGS (4)
  1. PRADAXA [Suspect]
     Dates: start: 20110401, end: 20120426
  2. CARDIZEM [Concomitant]
     Dates: start: 2010, end: 2012
  3. LOPRESSOR [Concomitant]
     Dates: start: 1979
  4. OMEPRAZOLE [Concomitant]

REACTIONS (2)
  - Gastrointestinal haemorrhage [Unknown]
  - Iron deficiency anaemia [Unknown]
